FAERS Safety Report 10960666 (Version 2)
Quarter: 2015Q3

REPORT INFORMATION
  Report Type: Spontaneous
  Country: FR (occurrence: None)
  Receive Date: 20150325
  Receipt Date: 20150707
  Transmission Date: 20151125
  Serious: Yes (Hospitalization, Other)
  Sender: FDA-Public Use
  Company Number: FR-H14001-15-00467

PATIENT
  Age: 65 Year
  Sex: Male
  Weight: 71 kg

DRUGS (7)
  1. DEPO-MEDROL [Suspect]
     Active Substance: METHYLPREDNISOLONE ACETATE
     Indication: ACUTE MYELOID LEUKAEMIA
     Route: 037
     Dates: start: 20090311, end: 20090311
  2. METHOTREXATE [Suspect]
     Active Substance: METHOTREXATE
     Indication: ACUTE MYELOID LEUKAEMIA
     Route: 037
     Dates: start: 20090311, end: 20090311
  3. CERUBIDINE [Suspect]
     Active Substance: DAUNORUBICIN HYDROCHLORIDE
     Indication: ACUTE MYELOID LEUKAEMIA
     Route: 042
     Dates: start: 20090226, end: 20090304
  4. ARACYTINE (CYTARABINE) (UNKNOWN) (CYTARABINE)? [Suspect]
     Active Substance: CYTARABINE
     Indication: ACUTE MYELOID LEUKAEMIA
     Route: 042
     Dates: start: 20090226, end: 20090304
  5. TARGOCID (TEICOPLANIN) [Concomitant]
  6. GEMTUZUMAB OZOGAMICIN [Suspect]
     Active Substance: GEMTUZUMAB OZOGAMICIN
     Indication: ACUTE MYELOID LEUKAEMIA
     Dosage: (5 MG,ONCEA DAY; ON DAY 1, 4 AND 7),INTRAVENOUS (NOT OTHERWISE SPECIFIED)
     Route: 042
     Dates: start: 20090226, end: 20090304
  7. FORTUM (CEFTAZIDIME PENTAHYDRATE) [Concomitant]

REACTIONS (8)
  - Petit mal epilepsy [None]
  - Meningorrhagia [None]
  - Partial seizures [None]
  - Subdural haematoma [None]
  - Condition aggravated [None]
  - Cerebral haemorrhage [None]
  - Bone marrow failure [None]
  - Pyrexia [None]

NARRATIVE: CASE EVENT DATE: 20090328
